FAERS Safety Report 10416218 (Version 4)
Quarter: 2015Q4

REPORT INFORMATION
  Report Type: Report from Study
  Country: US (occurrence: US)
  Receive Date: 20140828
  Receipt Date: 20151124
  Transmission Date: 20160304
  Serious: Yes (Hospitalization)
  Sender: FDA-Public Use
  Company Number: US-ACTELION-A-US2014-104128

PATIENT
  Age: 84 Year
  Sex: Female

DRUGS (3)
  1. WARFARIN [Concomitant]
     Active Substance: WARFARIN
  2. ASPIRIN. [Concomitant]
     Active Substance: ASPIRIN
  3. MACITENTAN [Suspect]
     Active Substance: MACITENTAN
     Indication: PULMONARY ARTERIAL HYPERTENSION
     Dosage: 10 MG, QD
     Route: 048
     Dates: start: 20140517

REACTIONS (4)
  - Sleep apnoea syndrome [Unknown]
  - Orthostatic hypotension [Unknown]
  - Dialysis [Unknown]
  - Medical device complication [Unknown]
